FAERS Safety Report 21740975 (Version 1)
Quarter: 2022Q4

REPORT INFORMATION
  Report Type: Report from Study
  Country: US (occurrence: US)
  Receive Date: 20221216
  Receipt Date: 20221216
  Transmission Date: 20230112
  Serious: No
  Sender: FDA-Public Use
  Company Number: US-ABBVIE-4198175

PATIENT
  Age: 47 Year
  Sex: Male

DRUGS (1)
  1. HUMIRA [Suspect]
     Active Substance: ADALIMUMAB
     Indication: Crohn^s disease
     Route: 058

REACTIONS (6)
  - Arthropod sting [Unknown]
  - Arthropod sting [Recovered/Resolved]
  - Peripheral swelling [Recovered/Resolved]
  - Arthropod sting [Recovered/Resolved]
  - Inflammation [Unknown]
  - Peripheral swelling [Recovered/Resolved]

NARRATIVE: CASE EVENT DATE: 20221104
